FAERS Safety Report 15220320 (Version 3)
Quarter: 2018Q4

REPORT INFORMATION
  Report Type: Spontaneous
  Country: JP (occurrence: JP)
  Receive Date: 20180731
  Receipt Date: 20181214
  Transmission Date: 20190204
  Serious: Yes (Hospitalization, Disabling, Other)
  Sender: FDA-Public Use
  Company Number: JP-MYLANLABS-2018M1050405

PATIENT
  Age: 75 Year
  Sex: Male
  Weight: 53 kg

DRUGS (4)
  1. CARBOPLATIN INJ. 150MG ^NK^ [Suspect]
     Active Substance: CARBOPLATIN
     Indication: LUNG NEOPLASM MALIGNANT
     Dosage: 450 MILLIGRAM, QD
     Route: 041
     Dates: start: 20180628, end: 20180628
  2. ABRAXANE [Suspect]
     Active Substance: PACLITAXEL
     Indication: LUNG NEOPLASM MALIGNANT
     Dosage: 180 MILLIGRAM, QD
     Route: 042
     Dates: start: 20180628, end: 20180628
  3. ALOXI [Concomitant]
     Active Substance: PALONOSETRON HYDROCHLORIDE
     Indication: PROPHYLAXIS OF NAUSEA AND VOMITING
     Dosage: 0.75 MG, ONCE
     Route: 042
     Dates: start: 20180628, end: 20180628
  4. DECADRON [Concomitant]
     Active Substance: DEXAMETHASONE
     Indication: PROPHYLAXIS OF NAUSEA AND VOMITING
     Dosage: 8 MG, ONCE
     Route: 042
     Dates: start: 20180628, end: 20180628

REACTIONS (1)
  - Interstitial lung disease [Recovering/Resolving]

NARRATIVE: CASE EVENT DATE: 20180703
